FAERS Safety Report 6992982-9 (Version None)
Quarter: 2010Q3

REPORT INFORMATION
  Report Type: 
  Country: None (occurrence: None)
  Receive Date: 20100917
  Receipt Date: 20100914
  Transmission Date: 20110219
  Serious: Yes (Other)
  Sender: FDA-Public Use
  Company Number: DE-BRISTOL-MYERS SQUIBB COMPANY-15203680

PATIENT
  Age: 44 Year
  Sex: Male

DRUGS (4)
  1. ORENCIA [Suspect]
     Indication: RHEUMATOID ARTHRITIS
     Dosage: 10MG/KG FOR 6 MONTHS
     Route: 042
     Dates: start: 20090901, end: 20100709
  2. DICLOFENAC SODIUM [Suspect]
     Indication: RHEUMATOID ARTHRITIS
     Route: 048
     Dates: start: 20090901, end: 20100526
  3. METHOTREXATE [Suspect]
     Indication: RHEUMATOID ARTHRITIS
     Dosage: ALSO TAKEN IN 2004,2006 AND 2008
     Route: 048
     Dates: start: 20090901, end: 20100701
  4. BENZBROMARONE [Suspect]
     Indication: GOUT
     Route: 048
     Dates: start: 20090401, end: 20100701

REACTIONS (1)
  - TRANSAMINASES INCREASED [None]
